FAERS Safety Report 6551950-1 (Version None)
Quarter: 2010Q1

REPORT INFORMATION
  Report Type: 
  Country: None (occurrence: None)
  Receive Date: 20100126
  Receipt Date: 20100118
  Transmission Date: 20100710
  Serious: Yes (Life-Threatening, Disabling, Other)
  Sender: FDA-Public Use
  Company Number: CH-BAYER-200935058GPV

PATIENT
  Sex: Female

DRUGS (1)
  1. YASMIN [Suspect]
     Indication: DRUG USE FOR UNKNOWN INDICATION
     Route: 048

REACTIONS (10)
  - BRAIN OEDEMA [None]
  - CEREBRAL VENOUS THROMBOSIS [None]
  - COMA [None]
  - CONVULSION [None]
  - COORDINATION ABNORMAL [None]
  - DISORIENTATION [None]
  - HEADACHE [None]
  - HEMIPLEGIA [None]
  - LOSS OF CONSCIOUSNESS [None]
  - MEMORY IMPAIRMENT [None]
